FAERS Safety Report 20444719 (Version 1)
Quarter: 2022Q1

REPORT INFORMATION
  Report Type: Spontaneous
  Country: US (occurrence: None)
  Receive Date: 20220207
  Receipt Date: 20220207
  Transmission Date: 20220424
  Serious: No
  Sender: FDA-Public Use
  Company Number: None

PATIENT
  Age: 50 Year
  Sex: Female
  Weight: 45 kg

DRUGS (1)
  1. EVUSHELD [Suspect]
     Active Substance: CILGAVIMAB\TIXAGEVIMAB
     Indication: COVID-19
     Dosage: FREQUENCY : ONCE;?
     Route: 030
     Dates: start: 20220128, end: 20220128

REACTIONS (5)
  - Intercepted product prescribing error [None]
  - Device programming error [None]
  - Circumstance or information capable of leading to medication error [None]
  - Product dispensing error [None]
  - Duplicate therapy error [None]

NARRATIVE: CASE EVENT DATE: 20220128
